FAERS Safety Report 10379391 (Version 2)
Quarter: 2014Q3

REPORT INFORMATION
  Report Type: Spontaneous
  Country: JP (occurrence: JP)
  Receive Date: 20140812
  Receipt Date: 20140814
  Transmission Date: 20150326
  Serious: Yes (Other)
  Sender: FDA-Public Use
  Company Number: JP-PFIZER INC-2014217751

PATIENT
  Age: 72 Year
  Sex: Female
  Weight: 42 kg

DRUGS (10)
  1. CAMPTO [Suspect]
     Active Substance: IRINOTECAN
     Indication: PANCREATIC CARCINOMA
     Dosage: 200 MG/BODY (150.4 MG/M2)
     Route: 041
     Dates: start: 20140602, end: 20140602
  2. EMEND [Concomitant]
     Active Substance: APREPITANT
     Dosage: UNK
     Dates: start: 20140602, end: 20140602
  3. DEXART [Concomitant]
     Active Substance: DEXAMETHASONE SODIUM PHOSPHATE
     Dosage: UNK
     Dates: start: 20140602, end: 20140602
  4. 5-FLUOROURACIL [Suspect]
     Active Substance: FLUOROURACIL
     Indication: PANCREATIC CARCINOMA
     Dosage: 500 MG/BODY (375.9 MG/M2)
     Route: 040
     Dates: start: 20140602, end: 20140602
  5. LEVOFOLINATE [Suspect]
     Active Substance: LEVOLEUCOVORIN CALCIUM
     Indication: PANCREATIC CARCINOMA
     Dosage: 260 MG/BODY (195.5 MG/M2)
     Route: 041
     Dates: start: 20140602, end: 20140602
  6. POLARAMINE [Concomitant]
     Active Substance: DEXCHLORPHENIRAMINE MALEATE
     Dosage: UNK
     Dates: start: 20140602, end: 20140602
  7. 5-FLUOROURACIL [Suspect]
     Active Substance: FLUOROURACIL
     Dosage: 3000 MG/BODY/D1-2 (2255.6 MG/M2/D1-2)
     Route: 041
     Dates: start: 20140602, end: 20140602
  8. PRIMPERAN [Concomitant]
     Active Substance: METOCLOPRAMIDE HYDROCHLORIDE
     Dosage: UNK
     Dates: start: 20140607, end: 20140607
  9. GRANISETRON [Concomitant]
     Active Substance: GRANISETRON
     Dosage: UNK
     Dates: start: 20140602, end: 20140602
  10. ELPLAT [Suspect]
     Active Substance: OXALIPLATIN
     Indication: PANCREATIC CARCINOMA
     Dosage: 100 MG/BODY (75.2 MG/M2)
     Route: 041
     Dates: start: 20140602, end: 20140602

REACTIONS (5)
  - Malaise [Recovered/Resolved]
  - Dysarthria [Recovered/Resolved]
  - Mental impairment [Recovered/Resolved]
  - Blood sodium decreased [Unknown]
  - Vomiting [Recovered/Resolved]

NARRATIVE: CASE EVENT DATE: 20140607
